FAERS Safety Report 19253971 (Version 2)
Quarter: 2021Q2

REPORT INFORMATION
  Report Type: Report from Study
  Country: None (occurrence: US)
  Receive Date: 20210513
  Receipt Date: 20210519
  Transmission Date: 20210717
  Serious: Yes (Other)
  Sender: FDA-Public Use
  Company Number: US-ABBVIE-21K-163-3900249-00

PATIENT
  Age: 54 Year
  Sex: Female

DRUGS (1)
  1. HUMIRA [Suspect]
     Active Substance: ADALIMUMAB
     Indication: CROHN^S DISEASE
     Route: 058

REACTIONS (12)
  - Feeding disorder [Unknown]
  - Pyrexia [Unknown]
  - Hypoaesthesia [Unknown]
  - Cold sweat [Unknown]
  - Arthralgia [Unknown]
  - Cardiac failure [Unknown]
  - Crohn^s disease [Not Recovered/Not Resolved]
  - Chills [Unknown]
  - Somnolence [Unknown]
  - Feeling cold [Unknown]
  - Hyperhidrosis [Unknown]
  - Pain in extremity [Unknown]

NARRATIVE: CASE EVENT DATE: 202010
